FAERS Safety Report 8118229-8 (Version None)
Quarter: 2012Q1

REPORT INFORMATION
  Report Type: 
  Country: None (occurrence: None)
  Receive Date: 20120201
  Receipt Date: 20120118
  Transmission Date: 20120608
  Serious: Yes (Hospitalization)
  Sender: FDA-Public Use
  Company Number: 1000027458

PATIENT
  Age: 93 Year
  Sex: Female

DRUGS (5)
  1. IXPRIM (PARACETAMOL, TRAMADOL) [Suspect]
     Dosage: (IF NECESSARY), ORAL
     Route: 048
     Dates: end: 20111121
  2. TAREG (VALSARTAN) (VALSARTAN) [Concomitant]
  3. LEVOTHYROXINE SODIUM [Concomitant]
  4. FORTIMEL (FORTIMEL) (FORTIMEL) [Concomitant]
  5. ESCITALOPRAM [Suspect]
     Dosage: 10 MG (10 MG, 1 IN 1 D), ORAL
     Route: 048
     Dates: start: 20111105, end: 20111121

REACTIONS (8)
  - AMNESIA [None]
  - RENAL FAILURE CHRONIC [None]
  - SPEECH DISORDER [None]
  - CONFUSIONAL STATE [None]
  - REFUSAL OF TREATMENT BY PATIENT [None]
  - MALAISE [None]
  - HEMIANOPIA HOMONYMOUS [None]
  - UNEVALUABLE EVENT [None]
